FAERS Safety Report 12465129 (Version 1)
Quarter: 2016Q2

REPORT INFORMATION
  Report Type: Spontaneous
  Country: VE (occurrence: VE)
  Receive Date: 20160614
  Receipt Date: 20160614
  Transmission Date: 20160815
  Serious: Yes (Other)
  Sender: FDA-Public Use
  Company Number: PHHY2016VE027927

PATIENT
  Sex: Male

DRUGS (4)
  1. MIFLONIDE [Suspect]
     Active Substance: BUDESONIDE
     Indication: CHRONIC OBSTRUCTIVE PULMONARY DISEASE
     Dosage: 1 DF, Q12H
     Route: 055
     Dates: start: 2005
  2. MONTELUKAST [Concomitant]
     Active Substance: MONTELUKAST SODIUM
     Indication: DYSPNOEA
     Dosage: 10 MG, QD
     Route: 065
  3. FORADIL [Suspect]
     Active Substance: FORMOTEROL FUMARATE
     Indication: CHRONIC OBSTRUCTIVE PULMONARY DISEASE
     Dosage: 1 DF, Q12H
     Route: 055
     Dates: start: 2005
  4. BERODUAL [Concomitant]
     Active Substance: FENOTEROL HYDROBROMIDE\IPRATROPIUM BROMIDE
     Indication: CHRONIC OBSTRUCTIVE PULMONARY DISEASE
     Dosage: 20 OT, QD
     Route: 065

REACTIONS (6)
  - Choking [Unknown]
  - Temperature intolerance [Unknown]
  - Fatigue [Unknown]
  - Glaucoma [Unknown]
  - Vision blurred [Unknown]
  - Visual acuity reduced [Unknown]
